FAERS Safety Report 20899091 (Version 5)
Quarter: 2024Q1

REPORT INFORMATION
  Report Type: Spontaneous
  Country: CA (occurrence: CA)
  Receive Date: 20220601
  Receipt Date: 20240328
  Transmission Date: 20240410
  Serious: Yes (Other)
  Sender: FDA-Public Use
  Company Number: CA-ROCHE-3101717

PATIENT
  Age: 53 Year
  Sex: Female
  Weight: 53 kg

DRUGS (35)
  1. CLONAZEPAM [Suspect]
     Active Substance: CLONAZEPAM
     Indication: Product used for unknown indication
     Dosage: UNK
     Route: 048
  2. XOLAIR [Suspect]
     Active Substance: OMALIZUMAB
     Indication: Chronic spontaneous urticaria
     Dosage: 150 MG (POWDER AND SOLVENT FOR SOLUTION FOR INJECTION) EVERY 3 WEEKS
     Route: 058
     Dates: start: 20160531
  3. XOLAIR [Suspect]
     Active Substance: OMALIZUMAB
     Indication: Chronic spontaneous urticaria
     Dosage: 150 MG (POWDER FOR INJECTION) EVERY 4 WEEKS
     Route: 058
     Dates: start: 20160531
  4. XOLAIR [Suspect]
     Active Substance: OMALIZUMAB
     Indication: Chronic spontaneous urticaria
     Dosage: UNK
     Route: 058
     Dates: start: 20160628
  5. XOLAIR [Suspect]
     Active Substance: OMALIZUMAB
     Indication: Chronic spontaneous urticaria
     Dosage: UNK, 3 WEEKS AND 1 DAY
     Route: 058
     Dates: start: 20160906
  6. XOLAIR [Suspect]
     Active Substance: OMALIZUMAB
     Indication: Chronic spontaneous urticaria
     Dosage: UNK
     Route: 058
     Dates: start: 20161025
  7. XOLAIR [Suspect]
     Active Substance: OMALIZUMAB
     Indication: Chronic spontaneous urticaria
     Dosage: UNK
     Route: 058
     Dates: start: 20161130
  8. XOLAIR [Suspect]
     Active Substance: OMALIZUMAB
     Indication: Chronic spontaneous urticaria
     Route: 058
     Dates: start: 20161228
  9. XOLAIR [Suspect]
     Active Substance: OMALIZUMAB
     Indication: Chronic spontaneous urticaria
     Dosage: UNK
     Route: 058
     Dates: start: 20170118
  10. XOLAIR [Suspect]
     Active Substance: OMALIZUMAB
     Indication: Chronic spontaneous urticaria
     Route: 058
     Dates: start: 20170227
  11. XOLAIR [Suspect]
     Active Substance: OMALIZUMAB
     Indication: Chronic spontaneous urticaria
     Dosage: UNK
     Route: 058
     Dates: start: 20170816
  12. XOLAIR [Suspect]
     Active Substance: OMALIZUMAB
     Indication: Chronic spontaneous urticaria
     Route: 058
     Dates: start: 20170920
  13. XOLAIR [Suspect]
     Active Substance: OMALIZUMAB
     Indication: Chronic spontaneous urticaria
     Dosage: 150 MG EVERY 3 WEEKS
     Route: 058
     Dates: start: 20171122
  14. XOLAIR [Suspect]
     Active Substance: OMALIZUMAB
     Indication: Chronic spontaneous urticaria
     Route: 058
     Dates: start: 20171213
  15. XOLAIR [Suspect]
     Active Substance: OMALIZUMAB
     Indication: Chronic spontaneous urticaria
     Dosage: UNK
     Route: 058
     Dates: start: 20180110
  16. XOLAIR [Suspect]
     Active Substance: OMALIZUMAB
     Indication: Chronic spontaneous urticaria
     Dosage: 150 MG EVERY 3 WEEKS
     Route: 058
     Dates: start: 20180822
  17. XOLAIR [Suspect]
     Active Substance: OMALIZUMAB
     Indication: Chronic spontaneous urticaria
     Dosage: 150 MG EVERY 3 WEEKS
     Route: 058
     Dates: start: 20190220
  18. XOLAIR [Suspect]
     Active Substance: OMALIZUMAB
     Indication: Chronic spontaneous urticaria
     Dosage: 150 MG EVERY 3 WEEKS
     Route: 058
     Dates: start: 20190626
  19. XOLAIR [Suspect]
     Active Substance: OMALIZUMAB
     Indication: Chronic spontaneous urticaria
     Route: 058
     Dates: start: 20200123
  20. XOLAIR [Suspect]
     Active Substance: OMALIZUMAB
     Indication: Chronic spontaneous urticaria
     Dosage: UNK
     Dates: start: 20210420
  21. XOLAIR [Suspect]
     Active Substance: OMALIZUMAB
     Indication: Chronic spontaneous urticaria
     Dates: start: 20221110
  22. XOLAIR [Suspect]
     Active Substance: OMALIZUMAB
     Indication: Chronic spontaneous urticaria
     Route: 058
     Dates: start: 20240214
  23. XOLAIR [Suspect]
     Active Substance: OMALIZUMAB
     Indication: Chronic spontaneous urticaria
     Dosage: 150 MG EVERY 3 WEEKS
     Route: 058
  24. XOLAIR [Suspect]
     Active Substance: OMALIZUMAB
     Indication: Chronic spontaneous urticaria
     Dosage: 150 MG (POWDER FOR INJECTION) EVERY THREE WEEKS
     Route: 058
  25. XOLAIR [Suspect]
     Active Substance: OMALIZUMAB
     Indication: Chronic spontaneous urticaria
     Dosage: 300 MG (POWDER AND SOLVENT FOR SOLUTION FOR INJECTION)
     Route: 058
  26. XOLAIR [Suspect]
     Active Substance: OMALIZUMAB
     Indication: Chronic spontaneous urticaria
     Dosage: 300 MG, Q3WEEKS (POWDER AND SOLVENT FOR SOLUTION FOR INJECTION)
     Route: 058
  27. CITALOPRAM [Suspect]
     Active Substance: CITALOPRAM\CITALOPRAM HYDROBROMIDE
     Indication: Product used for unknown indication
     Dosage: UNK
  28. CARBAMAZEPINE [Suspect]
     Active Substance: CARBAMAZEPINE
     Indication: Product used for unknown indication
     Dosage: UNK
  29. BACLOFEN [Suspect]
     Active Substance: BACLOFEN
     Indication: Product used for unknown indication
     Dosage: UNK
  30. VANCOMYCIN [Suspect]
     Active Substance: VANCOMYCIN
     Indication: Product used for unknown indication
     Dosage: UNK
     Route: 042
  31. CODEINE [Suspect]
     Active Substance: CODEINE
     Indication: Product used for unknown indication
     Dosage: UNK
  32. CLARITHROMYCIN [Suspect]
     Active Substance: CLARITHROMYCIN
     Indication: Product used for unknown indication
     Dosage: UNK
  33. Reactine [Concomitant]
     Indication: Product used for unknown indication
     Dosage: UNK
  34. BENADRYL [Concomitant]
     Active Substance: DIPHENHYDRAMINE HYDROCHLORIDE
     Indication: Product used for unknown indication
     Dosage: UNK
  35. PREDNISONE [Concomitant]
     Active Substance: PREDNISONE
     Indication: Product used for unknown indication
     Dosage: UNK

REACTIONS (26)
  - Oropharyngeal pain [Recovered/Resolved]
  - Migraine [Recovering/Resolving]
  - Oral herpes [Recovering/Resolving]
  - Nasopharyngitis [Recovering/Resolving]
  - Lower respiratory tract infection [Recovering/Resolving]
  - Fatigue [Recovered/Resolved]
  - Weight increased [Recovering/Resolving]
  - Rhinorrhoea [Recovering/Resolving]
  - Nasal congestion [Recovered/Resolved]
  - Hypoacusis [Recovering/Resolving]
  - Cough [Recovering/Resolving]
  - Respiratory tract congestion [Not Recovered/Not Resolved]
  - Illness [Recovering/Resolving]
  - Diarrhoea [Recovering/Resolving]
  - Influenza [Recovering/Resolving]
  - Back pain [Recovering/Resolving]
  - Dry eye [Recovering/Resolving]
  - Ear infection [Recovering/Resolving]
  - Drug hypersensitivity [Not Recovered/Not Resolved]
  - Heart rate increased [Recovering/Resolving]
  - Urticaria [Recovered/Resolved]
  - Pyrexia [Recovering/Resolving]
  - Weight decreased [Recovering/Resolving]
  - Oropharyngeal pain [Not Recovered/Not Resolved]
  - Lower respiratory tract infection [Recovering/Resolving]
  - Sunburn [Unknown]

NARRATIVE: CASE EVENT DATE: 20160802
